FAERS Safety Report 8915534 (Version 2)
Quarter: 2012Q4

REPORT INFORMATION
  Report Type: 
  Country: AU (occurrence: AU)
  Receive Date: 20121119
  Receipt Date: 20121120
  Transmission Date: 20130627
  Serious: Yes (Death)
  Sender: FDA-Public Use
  Company Number: PHHY2012AU104973

PATIENT
  Sex: Female

DRUGS (3)
  1. ACLASTA [Suspect]
     Route: 042
     Dates: start: 20090813
  2. ACLASTA [Suspect]
     Route: 042
     Dates: start: 20101015
  3. ACLASTA [Suspect]
     Route: 042
     Dates: start: 20111212

REACTIONS (1)
  - Death [Fatal]
